FAERS Safety Report 23560892 (Version 1)
Quarter: 2024Q1

REPORT INFORMATION
  Report Type: Spontaneous
  Country: JP (occurrence: JP)
  Receive Date: 20240223
  Receipt Date: 20240223
  Transmission Date: 20240410
  Serious: Yes (Other)
  Sender: FDA-Public Use
  Company Number: JP-AMGEN-JPNSP2024032747

PATIENT
  Age: 82 Year
  Sex: Male

DRUGS (9)
  1. BLINATUMOMAB [Suspect]
     Active Substance: BLINATUMOMAB
     Indication: B-cell type acute leukaemia
     Dosage: 9 MICROGRAM, QD (DURING 1ST WEEK OF INDUCTION CYCLE ONE)
     Route: 065
  2. BLINATUMOMAB [Suspect]
     Active Substance: BLINATUMOMAB
     Dosage: 17.5 MICROGRAM, QD (BY CONTINUOUS INFUSION)
     Route: 065
  3. BLINATUMOMAB [Suspect]
     Active Substance: BLINATUMOMAB
     Dosage: UNK (TREATMENT FOR FOUR WEEKS AND NO TREATMENT FOR TWO WEEKS)
     Route: 065
  4. BLINATUMOMAB [Suspect]
     Active Substance: BLINATUMOMAB
     Dosage: UNK, FOUR CYCLES (FOUR WEEKS CONTINUOUS INFUSION EVERY 12 WEEKS FOR 12 MONTHS)
     Route: 065
  5. BLINATUMOMAB [Suspect]
     Active Substance: BLINATUMOMAB
     Dosage: 17.5 MICROGRAM, QD (35 UG/ONE VIAL IN 48 HOURS) (NINE COURSES)
     Route: 065
  6. CYTARABINE [Concomitant]
     Active Substance: CYTARABINE
     Route: 029
  7. METHOTREXATE [Concomitant]
     Active Substance: METHOTREXATE
     Route: 029
  8. PREDNISOLONE [Concomitant]
     Active Substance: PREDNISOLONE
     Route: 029
  9. ENTECAVIR [Concomitant]
     Active Substance: ENTECAVIR
     Indication: Prophylaxis
     Route: 065

REACTIONS (3)
  - Hepatocellular carcinoma [Unknown]
  - Thrombocytopenia [Unknown]
  - Hepatic function abnormal [Unknown]
